FAERS Safety Report 13655409 (Version 1)
Quarter: 2017Q2

REPORT INFORMATION
  Report Type: Report from Study
  Country: MX (occurrence: MX)
  Receive Date: 20170615
  Receipt Date: 20170615
  Transmission Date: 20170830
  Serious: Yes (Death)
  Sender: FDA-Public Use
  Company Number: PHHY2017MX088716

PATIENT
  Sex: Male

DRUGS (1)
  1. EXELON PATCH [Suspect]
     Active Substance: RIVASTIGMINE
     Indication: SPEECH DISORDER
     Dosage: 4.6 MG, QD PATCH 5 (CM2)
     Route: 062
     Dates: end: 20170424

REACTIONS (5)
  - Feeling of despair [Unknown]
  - Dizziness [Unknown]
  - Product use in unapproved indication [Recovered/Resolved]
  - Death [Fatal]
  - Scratch [Unknown]
